FAERS Safety Report 18822394 (Version 1)
Quarter: 2021Q1

REPORT INFORMATION
  Report Type: Spontaneous
  Country: US (occurrence: US)
  Receive Date: 20210202
  Receipt Date: 20210202
  Transmission Date: 20210419
  Serious: Yes (Hospitalization, Other)
  Sender: FDA-Public Use
  Company Number: US-PACIRA-2021000052

PATIENT
  Age: 63 Year
  Sex: Male

DRUGS (12)
  1. LOVENOX 40 [Concomitant]
     Indication: POSTOPERATIVE CARE
     Dosage: NOT PROVIDED
     Route: 065
  2. TRAMADOL 50 [Concomitant]
     Active Substance: TRAMADOL
     Indication: POSTOPERATIVE CARE
     Dosage: Q6H OR AS NEEDED
     Route: 065
  3. ENTERIC?COATED ASPIRIN 325 MG [Concomitant]
     Indication: THROMBOSIS PROPHYLAXIS
     Dosage: BID
     Route: 065
  4. HIBICLENS 4% [Concomitant]
     Indication: POSTOPERATIVE CARE
     Dosage: NOT PROVIDED
     Route: 065
  5. PHENERGAN 25 [Concomitant]
     Indication: POSTOPERATIVE CARE
     Dosage: NOT PROVIDED
     Route: 065
  6. OMEPRAZOLE 40 [Concomitant]
     Active Substance: OMEPRAZOLE
     Indication: POSTOPERATIVE CARE
     Dosage: NOT PROVIDED
     Route: 065
  7. MOBIC 7.5M [Concomitant]
     Indication: POSTOPERATIVE CARE
     Dosage: NOT PROVIDED
     Route: 065
  8. VERSED 2MG [Concomitant]
     Indication: PREOPERATIVE CARE
     Dosage: 2 MG PERIOPERATIVE
     Route: 065
  9. OXYCODONE 5 [Concomitant]
     Indication: POSTOPERATIVE CARE
     Dosage: 5?10 MG Q6H OR AS NEEDED
     Route: 065
  10. TYLENOL [Concomitant]
     Active Substance: ACETAMINOPHEN
     Indication: POSTOPERATIVE CARE
     Dosage: Q6H AS NEEDED OR BASED ON SURGEON PREFERENCE
     Route: 065
  11. EXPAREL [Suspect]
     Active Substance: BUPIVACAINE
     Indication: POSTOPERATIVE ANALGESIA
     Dosage: 266 MG, 20CC
     Route: 065
  12. GABAPENTIN. [Concomitant]
     Active Substance: GABAPENTIN
     Indication: POSTOPERATIVE CARE
     Dosage: BID FOR 2 WEEKS
     Route: 065

REACTIONS (4)
  - Swelling [Unknown]
  - Vomiting [Unknown]
  - Nausea [Unknown]
  - Pulmonary embolism [Unknown]
